FAERS Safety Report 17661624 (Version 1)
Quarter: 2020Q2

REPORT INFORMATION
  Report Type: Spontaneous
  Country: GB (occurrence: GB)
  Receive Date: 20200413
  Receipt Date: 20200413
  Transmission Date: 20200713
  Serious: Yes (Death)
  Sender: FDA-Public Use
  Company Number: GB-MYLANLABS-2020M1036281

PATIENT
  Age: 54 Year
  Sex: Female

DRUGS (1)
  1. CLOZAPINE. [Suspect]
     Active Substance: CLOZAPINE
     Indication: PRODUCT USED FOR UNKNOWN INDICATION
     Dosage: 350 MILLIGRAM
     Route: 065

REACTIONS (3)
  - Completed suicide [Fatal]
  - Drug withdrawal syndrome [Fatal]
  - Insomnia [Unknown]
